FAERS Safety Report 18916321 (Version 1)
Quarter: 2021Q1

REPORT INFORMATION
  Report Type: Spontaneous
  Country: US (occurrence: US)
  Receive Date: 20210219
  Receipt Date: 20210219
  Transmission Date: 20210420
  Serious: Yes (Other)
  Sender: FDA-Public Use
  Company Number: None

PATIENT
  Age: 79 Year
  Sex: Male
  Weight: 107.2 kg

DRUGS (2)
  1. CASIRIVIMAB/IMDEVIMAB [Suspect]
     Active Substance: CASIRIVIMAB\IMDEVIMAB
     Indication: COVID-19
     Dosage: ?          OTHER FREQUENCY:ONCE;?
     Route: 041
     Dates: start: 20210218, end: 20210218
  2. DILTIAZEM INFUSION [Concomitant]
     Dates: start: 20210218

REACTIONS (4)
  - Vomiting projectile [None]
  - Pyrexia [None]
  - Heart rate increased [None]
  - Chills [None]

NARRATIVE: CASE EVENT DATE: 20210218
